FAERS Safety Report 7661291-7 (Version None)
Quarter: 2011Q3

REPORT INFORMATION
  Report Type: 
  Country: None (occurrence: None)
  Receive Date: 20110805
  Receipt Date: 20101006
  Transmission Date: 20111222
  Serious: No
  Sender: FDA-Public Use
  Company Number: US-ABBOTT-10P-163-0675961-00

PATIENT
  Sex: Female
  Weight: 93.978 kg

DRUGS (13)
  1. VICTOZA [Concomitant]
     Indication: DIABETES MELLITUS
  2. RED YEAST RICE-CONTAINS A STATIN [Concomitant]
     Indication: SUPPLEMENTATION THERAPY
  3. NIASPAN [Suspect]
     Indication: BLOOD CHOLESTEROL ABNORMAL
  4. MINOCYCLINE HCL [Concomitant]
     Indication: PRODUCT USED FOR UNKNOWN INDICATION
  5. NIASPAN [Suspect]
     Indication: LOW DENSITY LIPOPROTEIN ABNORMAL
  6. ASPIRIN [Concomitant]
     Indication: PRODUCT USED FOR UNKNOWN INDICATION
  7. LISINOPRIL [Concomitant]
     Indication: PRODUCT USED FOR UNKNOWN INDICATION
  8. LEVOTHROID [Concomitant]
     Indication: PRODUCT USED FOR UNKNOWN INDICATION
  9. UNKNOWN NASAL SPRAY [Concomitant]
     Indication: SEASONAL ALLERGY
  10. NIASPAN [Suspect]
     Indication: HIGH DENSITY LIPOPROTEIN ABNORMAL
     Dosage: AT BEDTIME
     Dates: start: 20100927
  11. NIASPAN [Suspect]
     Indication: BLOOD TRIGLYCERIDES ABNORMAL
  12. SPIRONOLACTONE [Concomitant]
     Indication: PRODUCT USED FOR UNKNOWN INDICATION
  13. FEXOFENADINE [Concomitant]
     Indication: PRODUCT USED FOR UNKNOWN INDICATION

REACTIONS (3)
  - FEELING HOT [None]
  - FLUSHING [None]
  - WRONG TECHNIQUE IN DRUG USAGE PROCESS [None]
